FAERS Safety Report 9571088 (Version 1)
Quarter: 2013Q3

REPORT INFORMATION
  Report Type: Spontaneous
  Country: US (occurrence: None)
  Receive Date: 20130927
  Receipt Date: 20130927
  Transmission Date: 20140515
  Serious: Yes (Other)
  Sender: FDA-Public Use
  Company Number: US-ZYDUS-002246

PATIENT
  Age: 26 Year
  Sex: Male

DRUGS (3)
  1. LEVETIRACETAM [Suspect]
  2. TOPIRAMATE [Suspect]
  3. AMFETAMINE [Suspect]

REACTIONS (1)
  - Cognitive disorder [None]
